FAERS Safety Report 5727600-0 (Version None)
Quarter: 2008Q2

REPORT INFORMATION
  Report Type: 
  Country: None (occurrence: None)
  Receive Date: 20080428
  Receipt Date: 20071207
  Transmission Date: 20081010
  Serious: Yes (Hospitalization)
  Sender: FDA-Public Use
  Company Number: 165211USA

PATIENT
  Age: 63 Year
  Sex: Female

DRUGS (1)
  1. OXYCODONE HCL EXTENDED-RELEASE [Suspect]
     Dosage: (20 MG)

REACTIONS (3)
  - DRUG DEPENDENCE [None]
  - LETHARGY [None]
  - MEDICATION ERROR [None]
